FAERS Safety Report 5151249-4 (Version None)
Quarter: 2006Q4

REPORT INFORMATION
  Report Type: 
  Country: None (occurrence: None)
  Receive Date: 20061110
  Receipt Date: 20061110
  Transmission Date: 20070319
  Serious: Yes (Life-Threatening, Hospitalization)
  Sender: FDA-Public Use
  Company Number: None

PATIENT
  Sex: Female

DRUGS (4)
  1. CLOZAPINE [Suspect]
     Dosage: 200MG BID PO
     Route: 048
     Dates: start: 20060925, end: 20061108
  2. TOPAMAX [Concomitant]
  3. NEURONTIN [Concomitant]
  4. GLUCOPHAGE [Concomitant]

REACTIONS (1)
  - AGRANULOCYTOSIS [None]
